FAERS Safety Report 23849733 (Version 1)
Quarter: 2024Q2

REPORT INFORMATION
  Report Type: Spontaneous
  Country: US (occurrence: None)
  Receive Date: 20240512
  Receipt Date: 20240512
  Transmission Date: 20240716
  Serious: Yes (Other)
  Sender: FDA-Public Use
  Company Number: None

PATIENT
  Age: 44 Year
  Sex: Female
  Weight: 51.3 kg

DRUGS (2)
  1. DYSPORT [Suspect]
     Active Substance: ABOBOTULINUMTOXINA
     Indication: Muscle hypertrophy
     Dates: start: 20220724, end: 20220724
  2. DYSPORT [Suspect]
     Active Substance: ABOBOTULINUMTOXINA
     Indication: Myalgia

REACTIONS (8)
  - Jaw disorder [None]
  - Craniofacial deformity [None]
  - Deformity of orbit [None]
  - Fatigue [None]
  - Lid sulcus deepened [None]
  - Bone loss [None]
  - Marital problem [None]
  - Product communication issue [None]

NARRATIVE: CASE EVENT DATE: 20220824
